FAERS Safety Report 7656826-4 (Version None)
Quarter: 2011Q3

REPORT INFORMATION
  Report Type: 
  Country: None (occurrence: None)
  Receive Date: 20110801
  Receipt Date: 20110714
  Transmission Date: 20111222
  Serious: Yes (Life-Threatening, Hospitalization, Other)
  Sender: FDA-Public Use
  Company Number: 2011MA008883

PATIENT
  Age: 50 Year
  Sex: Female

DRUGS (2)
  1. LABETALOL HCL [Suspect]
     Indication: INTENTIONAL OVERDOSE
  2. LORAZEPAM [Suspect]
     Indication: INTENTIONAL OVERDOSE

REACTIONS (8)
  - BLOOD GLUCOSE INCREASED [None]
  - INTENTIONAL OVERDOSE [None]
  - UNRESPONSIVE TO STIMULI [None]
  - ELECTROCARDIOGRAM QRS COMPLEX PROLONGED [None]
  - COMA SCALE ABNORMAL [None]
  - HYPOTENSION [None]
  - BRADYCARDIA [None]
  - BLOOD POTASSIUM DECREASED [None]
